FAERS Safety Report 11179368 (Version 2)
Quarter: 2015Q2

REPORT INFORMATION
  Report Type: Report from Study
  Country: FR (occurrence: FR)
  Receive Date: 20150611
  Receipt Date: 20150630
  Transmission Date: 20150821
  Serious: Yes (Hospitalization, Other)
  Sender: FDA-Public Use
  Company Number: FR-ROCHE-1591078

PATIENT
  Age: 57 Year
  Sex: Male
  Weight: 64 kg

DRUGS (11)
  1. VINDESINE [Concomitant]
     Active Substance: VINDESINE
     Indication: DIFFUSE LARGE B-CELL LYMPHOMA
     Route: 065
     Dates: start: 20140306, end: 20140421
  2. ETOPOSIDE. [Concomitant]
     Active Substance: ETOPOSIDE
     Indication: DIFFUSE LARGE B-CELL LYMPHOMA
     Dosage: CONSOLIDATION PHASE
     Route: 065
     Dates: start: 20140512, end: 20140905
  3. PREDNISONE. [Concomitant]
     Active Substance: PREDNISONE
     Indication: DIFFUSE LARGE B-CELL LYMPHOMA
     Route: 065
     Dates: start: 20140306, end: 20140421
  4. CYCLOPHOSPHAMIDE. [Concomitant]
     Active Substance: CYCLOPHOSPHAMIDE
     Indication: DIFFUSE LARGE B-CELL LYMPHOMA
     Route: 065
     Dates: start: 20140306, end: 20140421
  5. ARACYTINE [Concomitant]
     Active Substance: CYTARABINE
     Indication: DIFFUSE LARGE B-CELL LYMPHOMA
     Dosage: CONSOLIDATION PHASE, DURING 4 DAYS EVERY 14 DAYS FOR 2 CYCLES, AS PER PROTOCOL.
     Route: 058
     Dates: start: 20140512, end: 20140905
  6. OBINUTUZUMAB [Suspect]
     Active Substance: OBINUTUZUMAB
     Indication: DIFFUSE LARGE B-CELL LYMPHOMA
     Dosage: INDUCTION PHASE.
     Route: 065
     Dates: start: 20140306
  7. OBINUTUZUMAB [Suspect]
     Active Substance: OBINUTUZUMAB
     Dosage: LAST DOSE RECEIVED PRIOR TO THE ONSET OF THE EVENT ON 23/JUL/2014.?CONSOLIDATION PHASE.?PATIENT IS I
     Route: 065
     Dates: start: 20140512, end: 20140905
  8. DOXORUBICIN [Concomitant]
     Active Substance: DOXORUBICIN
     Indication: DIFFUSE LARGE B-CELL LYMPHOMA
     Route: 065
     Dates: start: 20140306, end: 20140421
  9. BLEOMYCIN [Concomitant]
     Active Substance: BLEOMYCIN SULFATE
     Indication: DIFFUSE LARGE B-CELL LYMPHOMA
     Dosage: 10MG TOTAL DOSE
     Route: 065
     Dates: start: 20140306, end: 20140421
  10. METHOTREXATE [Concomitant]
     Active Substance: METHOTREXATE
     Indication: DIFFUSE LARGE B-CELL LYMPHOMA
     Dosage: HIGH DOSE OF 3 G/M2 FOR 2 CYCLES AS PER PROTOCOL. CONSOLIDATION PHASE.
     Route: 065
     Dates: start: 20140512, end: 20140905
  11. IFOSFAMIDE. [Concomitant]
     Active Substance: IFOSFAMIDE
     Indication: DIFFUSE LARGE B-CELL LYMPHOMA
     Dosage: CONSOLIDATION PHASE, 1.5 G/M2
     Route: 065
     Dates: start: 20140512, end: 20140905

REACTIONS (1)
  - Febrile neutropenia [Recovered/Resolved]

NARRATIVE: CASE EVENT DATE: 20150605
